FAERS Safety Report 8295528-0 (Version None)
Quarter: 2012Q2

REPORT INFORMATION
  Report Type: 
  Country: None (occurrence: None)
  Receive Date: 20120413
  Receipt Date: 20120329
  Transmission Date: 20120825
  Serious: Yes (Life-Threatening, Other)
  Sender: FDA-Public Use
  Company Number: FK201200976

PATIENT
  Age: 67 Year
  Sex: Female

DRUGS (9)
  1. DOXAZOSIN MESYLATE [Concomitant]
  2. FOLIC ACID [Concomitant]
  3. BENDROFLUMETHIAZIDE (BENDROFLUMETHIAZIDE) [Concomitant]
  4. ATORVASTATIN [Concomitant]
  5. CLOPIDOGREL [Concomitant]
  6. ATENOLOL [Concomitant]
  7. LANSOPRAZOLE [Concomitant]
  8. METHOTREXATE [Suspect]
     Indication: PRODUCT USED FOR UNKNOWN INDICATION
  9. LISINOPRIL [Concomitant]

REACTIONS (1)
  - BASAL CELL CARCINOMA [None]
